FAERS Safety Report 24195678 (Version 1)
Quarter: 2024Q3

REPORT INFORMATION
  Report Type: Spontaneous
  Country: US (occurrence: None)
  Receive Date: 20240809
  Receipt Date: 20240809
  Transmission Date: 20241017
  Serious: No
  Sender: Public
  Company Number: None

PATIENT
  Age: 43 Year
  Sex: Female

DRUGS (1)
  1. AJOVY [Suspect]
     Active Substance: FREMANEZUMAB-VFRM
     Dosage: 225 MG EVERY MONTH SUBCUTANEOUS
     Route: 058

REACTIONS (3)
  - Dizziness [None]
  - Balance disorder [None]
  - Nausea [None]

NARRATIVE: CASE EVENT DATE: 20240808
